FAERS Safety Report 20917764 (Version 5)
Quarter: 2023Q2

REPORT INFORMATION
  Report Type: Spontaneous
  Country: DE (occurrence: DE)
  Receive Date: 20220606
  Receipt Date: 20230601
  Transmission Date: 20230721
  Serious: Yes (Death, Hospitalization, Other)
  Sender: FDA-Public Use
  Company Number: DE-JNJFOC-20220526007

PATIENT
  Sex: Male
  Weight: 100 kg

DRUGS (39)
  1. TADALAFIL [Suspect]
     Active Substance: TADALAFIL
     Indication: Pulmonary arterial hypertension
     Dosage: 40 MILLIGRAM
     Route: 048
     Dates: start: 20201003, end: 202204
  2. MACITENTAN [Suspect]
     Active Substance: MACITENTAN
     Indication: Pulmonary arterial hypertension
     Dosage: 10 MILLIGRAM
     Route: 048
     Dates: start: 20210609
  3. SELEXIPAG [Suspect]
     Active Substance: SELEXIPAG
     Indication: Pulmonary arterial hypertension
     Dosage: 400 MICROGRAM
     Route: 048
     Dates: start: 20211022
  4. SELEXIPAG [Suspect]
     Active Substance: SELEXIPAG
     Dosage: 800 MICROGRAM
     Route: 048
     Dates: start: 20211106
  5. SELEXIPAG [Suspect]
     Active Substance: SELEXIPAG
     Dosage: 1200 MICROGRAM
     Route: 048
     Dates: start: 20211120
  6. SELEXIPAG [Suspect]
     Active Substance: SELEXIPAG
     Dosage: 1600 MICROGRAM
     Route: 048
     Dates: start: 20211205
  7. SELEXIPAG [Suspect]
     Active Substance: SELEXIPAG
     Dosage: 2000 MICROGRAM
     Route: 048
     Dates: start: 20211218
  8. SELEXIPAG [Suspect]
     Active Substance: SELEXIPAG
     Dosage: 2400 MICROGRAM
     Route: 048
     Dates: start: 20220114
  9. SELEXIPAG [Suspect]
     Active Substance: SELEXIPAG
     Dosage: 400 MICROGRAM
     Route: 048
     Dates: start: 202204
  10. ALLOPURINOL [Concomitant]
     Active Substance: ALLOPURINOL
     Indication: Gout
     Dosage: UNK
     Route: 048
  11. ASPIRIN [Concomitant]
     Active Substance: ASPIRIN
     Indication: Platelet aggregation inhibition
     Dosage: UNK
     Route: 048
     Dates: end: 2021
  12. BISOPROLOL [Concomitant]
     Active Substance: BISOPROLOL
     Indication: Hypertension
     Dosage: UNK
     Route: 048
  13. CLARITHROMYCIN [Concomitant]
     Active Substance: CLARITHROMYCIN
     Indication: Antibiotic therapy
     Dosage: UNK
     Route: 042
     Dates: start: 20220411, end: 20220420
  14. CLOPIDOGREL BISULFATE [Concomitant]
     Active Substance: CLOPIDOGREL BISULFATE
     Indication: Platelet aggregation inhibition
     Dosage: UNK
     Route: 048
     Dates: start: 20201002
  15. DAPAGLIFLOZIN [Concomitant]
     Active Substance: DAPAGLIFLOZIN
     Indication: Type 2 diabetes mellitus
     Dosage: UNK
     Route: 048
  16. ENALAPRIL [Concomitant]
     Active Substance: ENALAPRIL
     Indication: Hypertension
     Dosage: UNK
     Route: 048
  17. FENTANYL CITRATE [Concomitant]
     Active Substance: FENTANYL CITRATE
     Indication: Product used for unknown indication
     Dosage: UNK, (JUN/2022)
     Route: 065
  18. FOLIC ACID [Concomitant]
     Active Substance: FOLIC ACID
     Indication: Vitamin supplementation
     Dosage: UNK
     Route: 048
     Dates: start: 202203
  19. FOLIC ACID [Concomitant]
     Active Substance: FOLIC ACID
     Indication: Anaemia
  20. HYDROMORPHONE [Concomitant]
     Active Substance: HYDROMORPHONE
     Indication: Product used for unknown indication
     Dosage: UNK, (JUN/2022)
     Route: 058
  21. IRON [Concomitant]
     Active Substance: IRON
     Indication: Anaemia
     Dosage: UNK
     Route: 065
     Dates: start: 202203
  22. LEVEMIR [Concomitant]
     Active Substance: INSULIN DETEMIR
     Indication: Type 2 diabetes mellitus
     Dosage: UNK
     Route: 058
  23. LORAZEPAM [Concomitant]
     Active Substance: LORAZEPAM
     Indication: Fear
     Dosage: UNK (JUN/2022)
     Route: 048
  24. METFORMIN [Concomitant]
     Active Substance: METFORMIN HYDROCHLORIDE
     Indication: Type 2 diabetes mellitus
     Dosage: UNK
     Route: 048
  25. MIDAZOLAM [Concomitant]
     Active Substance: MIDAZOLAM
     Indication: Sleep disorder
     Dosage: UNK, (JUN/2022)
     Route: 058
  26. MOXONIDINE [Concomitant]
     Active Substance: MOXONIDINE
     Indication: Hypertension
     Dosage: UNK
     Route: 048
  27. PANTOPRAZOLE [Concomitant]
     Active Substance: PANTOPRAZOLE
     Indication: Gastrooesophageal reflux disease
     Dosage: UNK
     Route: 048
  28. PIPAMPERONE [Concomitant]
     Active Substance: PIPAMPERONE
     Indication: Sleep disorder
     Dosage: UNK, (JUN/2022)
     Route: 048
  29. PIPERACILLIN [Concomitant]
     Active Substance: PIPERACILLIN
     Indication: Antibiotic therapy
     Dosage: UNK
     Route: 042
     Dates: start: 20220411, end: 20220416
  30. RIOCIGUAT [Concomitant]
     Active Substance: RIOCIGUAT
     Indication: Product used for unknown indication
     Dosage: 2 UNK, ONCE A DAY
     Route: 048
     Dates: start: 202204
  31. RIOCIGUAT [Concomitant]
     Active Substance: RIOCIGUAT
     Dosage: 3 UNK, ONCE A DAY
     Route: 048
     Dates: start: 20220511
  32. ROBINUL [Concomitant]
     Active Substance: GLYCOPYRROLATE
     Indication: Bronchiectasis
     Dosage: UNK, (JUN/2022)
     Route: 058
  33. ROBINUL [Concomitant]
     Active Substance: GLYCOPYRROLATE
     Dosage: UNK
  34. SIMVASTATIN [Concomitant]
     Active Substance: SIMVASTATIN
     Indication: Hypercholesterolaemia
     Dosage: UNK
     Route: 048
  35. SPIRONOLACTONE [Concomitant]
     Active Substance: SPIRONOLACTONE
     Indication: Diuretic therapy
     Dosage: UNK
     Route: 048
  36. TORSEMIDE [Concomitant]
     Active Substance: TORSEMIDE
     Indication: Diuretic therapy
     Dosage: UNK
     Route: 048
  37. SULTAMICILLIN TOSYLATE [Concomitant]
     Active Substance: SULTAMICILLIN TOSYLATE
     Indication: Antibiotic therapy
     Dosage: UNK
     Route: 042
     Dates: start: 20220416, end: 20220420
  38. VICTOZA [Concomitant]
     Active Substance: LIRAGLUTIDE
     Indication: Type 2 diabetes mellitus
     Dosage: UNK
     Route: 058
  39. ZOPICLONE [Concomitant]
     Active Substance: ZOPICLONE
     Indication: Sleep disorder therapy
     Dosage: UNK
     Route: 048

REACTIONS (7)
  - Pulmonary arterial hypertension [Fatal]
  - Chronic obstructive pulmonary disease [Fatal]
  - Acute kidney injury [Recovered/Resolved]
  - Hypotension [Recovered/Resolved]
  - Diarrhoea [Recovered/Resolved]
  - Decreased appetite [Unknown]
  - Metabolic acidosis [Unknown]

NARRATIVE: CASE EVENT DATE: 20220313
